FAERS Safety Report 5447526-X (Version None)
Quarter: 2007Q3

REPORT INFORMATION
  Report Type: 
  Country: None (occurrence: None)
  Receive Date: 20070910
  Receipt Date: 20070829
  Transmission Date: 20080115
  Serious: Yes (Hospitalization)
  Sender: FDA-Public Use
  Company Number: B0486158A

PATIENT
  Age: 3 Month
  Sex: Female
  Weight: 5.1 kg

DRUGS (4)
  1. VENTOLIN [Suspect]
     Indication: BRONCHIOLITIS
     Route: 055
     Dates: start: 20070722, end: 20070722
  2. PREVENAR [Concomitant]
     Indication: PROPHYLAXIS
     Route: 065
     Dates: start: 20070719, end: 20070719
  3. PENTACOQ [Concomitant]
     Indication: PROPHYLAXIS
     Route: 065
     Dates: start: 20070719, end: 20070719
  4. OXYGEN [Concomitant]
     Indication: BRONCHIOLITIS
     Route: 055
     Dates: start: 20070722

REACTIONS (2)
  - ACUTE RESPIRATORY DISTRESS SYNDROME [None]
  - APNOEA [None]
